FAERS Safety Report 25259007 (Version 3)
Quarter: 2025Q2

REPORT INFORMATION
  Report Type: Spontaneous
  Country: US (occurrence: US)
  Receive Date: 20250501
  Receipt Date: 20250506
  Transmission Date: 20250717
  Serious: No
  Sender: PFIZER
  Company Number: US-PFIZER INC-202500086878

PATIENT
  Age: 7 Year
  Sex: Male
  Weight: 23.59 kg

DRUGS (2)
  1. NGENLA [Suspect]
     Active Substance: SOMATROGON-GHLA
     Indication: Growth hormone deficiency
     Dosage: 60 MG, WEEKLY
  2. PERIACTIN [Concomitant]
     Active Substance: CYPROHEPTADINE HYDROCHLORIDE
     Indication: Appetite disorder
     Dosage: 20 ML, DAILY (ORAL LIQUID, HAS BEEN TAKING, MAYBE 2 YEARS)

REACTIONS (2)
  - Incorrect dose administered by device [Unknown]
  - Device mechanical issue [Unknown]
